FAERS Safety Report 15259058 (Version 1)
Quarter: 2018Q3

REPORT INFORMATION
  Report Type: Spontaneous
  Country: US (occurrence: US)
  Receive Date: 20180718
  Receipt Date: 20180718
  Transmission Date: 20181010
  Serious: No
  Sender: FDA-Public Use
  Company Number: None

PATIENT
  Age: 35 Year
  Sex: Female
  Weight: 51.75 kg

DRUGS (1)
  1. BUPRENORPHINE AND NALOXONE SUBLINGUAL TABLETS [Suspect]
     Active Substance: BUPRENORPHINE\NALOXONE
     Indication: DRUG WITHDRAWAL MAINTENANCE THERAPY
     Dosage: ?          QUANTITY:30 TABLET(S);?
     Route: 060
     Dates: start: 20180623, end: 20180627

REACTIONS (9)
  - Withdrawal syndrome [None]
  - Fatigue [None]
  - Headache [None]
  - Dyspnoea [None]
  - Dysgeusia [None]
  - Decreased appetite [None]
  - Chest discomfort [None]
  - Ear congestion [None]
  - Product quality issue [None]

NARRATIVE: CASE EVENT DATE: 20180623
